FAERS Safety Report 20763301 (Version 1)
Quarter: 2022Q2

REPORT INFORMATION
  Report Type: Spontaneous
  Country: AU (occurrence: AU)
  Receive Date: 20220428
  Receipt Date: 20220428
  Transmission Date: 20220720
  Serious: Yes (Other)
  Sender: FDA-Public Use
  Company Number: AU-NOVARTISPH-NVSC2022AU097344

PATIENT
  Age: 33 Year
  Sex: Male

DRUGS (12)
  1. ONDANSETRON [Suspect]
     Active Substance: ONDANSETRON
     Indication: Procedural nausea
     Dosage: UNK
     Route: 065
  2. ONDANSETRON [Suspect]
     Active Substance: ONDANSETRON
     Indication: Procedural vomiting
  3. LEVOMEPROMAZINE [Suspect]
     Active Substance: LEVOMEPROMAZINE
     Indication: Procedural nausea
     Dosage: UNK
     Route: 065
  4. LEVOMEPROMAZINE [Suspect]
     Active Substance: LEVOMEPROMAZINE
     Indication: Procedural vomiting
  5. CYCLIZINE [Suspect]
     Active Substance: CYCLIZINE
     Indication: Procedural nausea
     Dosage: UNK
     Route: 065
  6. CYCLIZINE [Suspect]
     Active Substance: CYCLIZINE
     Indication: Procedural vomiting
  7. METOCLOPRAMIDE [Suspect]
     Active Substance: METOCLOPRAMIDE
     Indication: Procedural nausea
     Dosage: UNK
     Route: 065
  8. METOCLOPRAMIDE [Suspect]
     Active Substance: METOCLOPRAMIDE
     Indication: Procedural vomiting
  9. DROPERIDOL [Suspect]
     Active Substance: DROPERIDOL
     Indication: Procedural nausea
     Dosage: TWO DOSES
     Route: 065
  10. DROPERIDOL [Suspect]
     Active Substance: DROPERIDOL
     Indication: Procedural vomiting
  11. HALOPERIDOL [Suspect]
     Active Substance: HALOPERIDOL
     Indication: Procedural nausea
     Dosage: UNK
     Route: 065
  12. HALOPERIDOL [Suspect]
     Active Substance: HALOPERIDOL
     Indication: Procedural vomiting

REACTIONS (3)
  - Electrocardiogram QT prolonged [Unknown]
  - Therapy non-responder [Unknown]
  - Product use in unapproved indication [Unknown]
